FAERS Safety Report 14882889 (Version 1)
Quarter: 2018Q2

REPORT INFORMATION
  Report Type: Spontaneous
  Country: US (occurrence: US)
  Receive Date: 20180511
  Receipt Date: 20180511
  Transmission Date: 20180711
  Serious: Yes (Hospitalization)
  Sender: FDA-Public Use
  Company Number: US-TEVA-2018-US-853524

PATIENT
  Age: 70 Year
  Sex: Male

DRUGS (43)
  1. MARIJUANA [Concomitant]
     Active Substance: CANNABIS SATIVA SUBSP. INDICA TOP
     Dosage: 1 JOINT
     Route: 055
  2. MS CONTIN [Concomitant]
     Active Substance: MORPHINE SULFATE
     Route: 048
  3. BENADRYL [Concomitant]
     Active Substance: DIPHENHYDRAMINE HYDROCHLORIDE
  4. VENETOCLAX. [Suspect]
     Active Substance: VENETOCLAX
     Route: 048
  5. COLACE [Concomitant]
     Active Substance: DOCUSATE SODIUM
     Route: 048
  6. DEXAMETHASONE. [Concomitant]
     Active Substance: DEXAMETHASONE
     Route: 048
  7. OXYCODONE [Concomitant]
     Active Substance: OXYCODONE
     Route: 048
  8. VENETOCLAX. [Suspect]
     Active Substance: VENETOCLAX
     Route: 048
  9. ARTIFICIAL TEARS [Concomitant]
     Active Substance: GLYCERIN\HYPROMELLOSES\POLYETHYLENE GLYCOL 400
     Route: 047
  10. BACLOFEN. [Concomitant]
     Active Substance: BACLOFEN
     Dosage: QD PRN
     Route: 048
  11. COLACE [Concomitant]
     Active Substance: DOCUSATE SODIUM
     Route: 048
  12. DEFEROXAMINE [Concomitant]
     Active Substance: DEFEROXAMINE\DEFEROXAMINE MESYLATE
     Route: 042
  13. DEXAMETHASONE SODIUM PHOSPHATE. [Concomitant]
     Active Substance: DEXAMETHASONE SODIUM PHOSPHATE
     Route: 042
  14. PROTONIX [Concomitant]
     Active Substance: PANTOPRAZOLE SODIUM
     Route: 048
  15. SENNA [Concomitant]
     Active Substance: SENNA LEAF\SENNOSIDES\SENNOSIDES A AND B
     Route: 048
  16. ZOFRAN [Concomitant]
     Active Substance: ONDANSETRON HYDROCHLORIDE
     Dosage: Q 8 HRS PRN
     Route: 048
  17. BACLOFEN. [Concomitant]
     Active Substance: BACLOFEN
     Route: 048
  18. COLACE [Concomitant]
     Active Substance: DOCUSATE SODIUM
     Route: 048
  19. DEXAMETHASONE. [Concomitant]
     Active Substance: DEXAMETHASONE
     Dosage: QD PRN
     Route: 048
  20. GRANISETRON [Concomitant]
     Active Substance: GRANISETRON
     Route: 042
  21. LOSARTAN. [Concomitant]
     Active Substance: LOSARTAN
     Route: 048
  22. OXYCODONE [Concomitant]
     Active Substance: OXYCODONE
     Route: 048
  23. SYNTHROID [Concomitant]
     Active Substance: LEVOTHYROXINE SODIUM
     Route: 048
  24. ZOFRAN [Concomitant]
     Active Substance: ONDANSETRON HYDROCHLORIDE
     Dosage: PRN Q6HRS
     Route: 042
  25. BACLOFEN. [Concomitant]
     Active Substance: BACLOFEN
     Route: 048
  26. LEVAQUIN [Concomitant]
     Active Substance: LEVOFLOXACIN
     Route: 048
  27. LEVAQUIN [Concomitant]
     Active Substance: LEVOFLOXACIN
     Route: 048
  28. PRILOSEC [Concomitant]
     Active Substance: OMEPRAZOLE MAGNESIUM
     Route: 048
  29. ZOFRAN [Concomitant]
     Active Substance: ONDANSETRON HYDROCHLORIDE
     Route: 048
  30. AZACITIDINE. [Suspect]
     Active Substance: AZACITIDINE
     Dosage: DAYS OF 1-7 OF EACH 28-DAY CYCLE
     Route: 042
  31. DESFERAL [Concomitant]
     Active Substance: DEFEROXAMINE MESYLATE
     Route: 042
  32. FLONASE [Concomitant]
     Active Substance: FLUTICASONE PROPIONATE
     Dosage: 1 SPRAY
     Route: 045
  33. FOLIC ACID. [Concomitant]
     Active Substance: FOLIC ACID
     Route: 048
  34. SENNA [Concomitant]
     Active Substance: SENNA LEAF\SENNOSIDES\SENNOSIDES A AND B
     Route: 048
  35. TRAZODONE [Concomitant]
     Active Substance: TRAZODONE HYDROCHLORIDE
     Dosage: AT BED TIME
     Route: 048
  36. TYLENOL [Concomitant]
     Active Substance: ACETAMINOPHEN
     Route: 048
  37. VENETOCLAX. [Suspect]
     Active Substance: VENETOCLAX
     Route: 048
  38. DEXAMETHASONE. [Concomitant]
     Active Substance: DEXAMETHASONE
     Dosage: QD PRN
     Route: 048
  39. MS CONTIN [Concomitant]
     Active Substance: MORPHINE SULFATE
     Route: 048
  40. PRILOSEC [Concomitant]
     Active Substance: OMEPRAZOLE MAGNESIUM
     Route: 048
  41. ACYCLOVIR. [Concomitant]
     Active Substance: ACYCLOVIR
     Route: 048
  42. BACLOFEN. [Concomitant]
     Active Substance: BACLOFEN
     Dosage: QD PM
     Route: 048
  43. DULCOLAX NOS [Concomitant]
     Active Substance: BISACODYL OR DOCUSATE SODIUM
     Route: 048

REACTIONS (2)
  - Syncope [Unknown]
  - Hypotension [Unknown]
